FAERS Safety Report 9777763 (Version 1)
Quarter: 2013Q4

REPORT INFORMATION
  Report Type: Spontaneous
  Country: US (occurrence: US)
  Receive Date: 20131223
  Receipt Date: 20131223
  Transmission Date: 20140711
  Serious: Yes (Other)
  Sender: FDA-Public Use
  Company Number: US-BIOGENIDEC-2013BI118928

PATIENT
  Sex: Male
  Weight: 4 kg

DRUGS (1)
  1. AVONEX [Suspect]
     Indication: EXPOSURE VIA FATHER
     Route: 064
     Dates: start: 20121115

REACTIONS (1)
  - Hypoacusis [Not Recovered/Not Resolved]
